FAERS Safety Report 22382569 (Version 1)
Quarter: 2023Q2

REPORT INFORMATION
  Report Type: Spontaneous
  Country: US (occurrence: US)
  Receive Date: 20230530
  Receipt Date: 20230530
  Transmission Date: 20230721
  Serious: Yes (Hospitalization)
  Sender: FDA-Public Use
  Company Number: US-MACLEODS PHARMACEUTICALS US LTD-MAC2023041551

PATIENT

DRUGS (1)
  1. SEVELAMER CARBONATE [Suspect]
     Active Substance: SEVELAMER CARBONATE
     Indication: Urinary tract infection
     Dosage: 800 MILLIGRAM, TID (WITH MEALS)
     Route: 065

REACTIONS (1)
  - Intestinal mucosal tear [Recovering/Resolving]
